FAERS Safety Report 6182266-3 (Version None)
Quarter: 2009Q2

REPORT INFORMATION
  Report Type: 
  Country: None (occurrence: None)
  Receive Date: 20090505
  Receipt Date: 20090428
  Transmission Date: 20091009
  Serious: Yes (Death)
  Sender: FDA-Public Use
  Company Number: 2009JP002531

PATIENT
  Age: 54 Year
  Sex: Male

DRUGS (5)
  1. FK506(TACROLIMUS) FORMULATION UNKNOWN [Suspect]
     Indication: LUNG TRANSPLANT
  2. CELLCEPT [Concomitant]
  3. METHYLPREDNISOLONE 16MG TAB [Concomitant]
  4. CORTICOSTEROIDS [Concomitant]
  5. CEPHALOSPORIN C (CEPHALOSPORIN C) [Concomitant]

REACTIONS (3)
  - LUNG INFECTION [None]
  - MULTI-ORGAN FAILURE [None]
  - TRANSPLANT REJECTION [None]
